FAERS Safety Report 5203980-X (Version None)
Quarter: 2007Q1

REPORT INFORMATION
  Report Type: 
  Country: None (occurrence: None)
  Receive Date: 20070110
  Receipt Date: 20061229
  Transmission Date: 20070707
  Serious: Yes (Other)
  Sender: FDA-Public Use
  Company Number: PE-PFIZER INC-2006110100

PATIENT
  Age: 74 Year
  Sex: Male

DRUGS (3)
  1. LYRICA [Suspect]
     Indication: NEURALGIA
     Route: 048
  2. LYRICA [Suspect]
     Indication: POST HERPETIC NEURALGIA
     Dosage: DAILY DOSE:225MG-TEXT:150 MG IN THE MORNING, 75 MG AT NIGHT
     Route: 048
  3. TRAMADOL HCL [Concomitant]
     Route: 048

REACTIONS (4)
  - CATARACT [None]
  - MYOPIA [None]
  - SOMNOLENCE [None]
  - VISUAL ACUITY REDUCED [None]
